FAERS Safety Report 9364915 (Version 1)
Quarter: 2013Q2

REPORT INFORMATION
  Report Type: Spontaneous
  Country: US (occurrence: US)
  Receive Date: 20130624
  Receipt Date: 20130624
  Transmission Date: 20140414
  Serious: Yes (Hospitalization)
  Sender: FDA-Public Use
  Company Number: US-LUNDBECK-DKLU1091181

PATIENT
  Sex: Female
  Weight: 8 kg

DRUGS (11)
  1. SABRIL (FOR ORAL SOLUTION) [Suspect]
     Indication: INFANTILE SPASMS
     Route: 048
     Dates: start: 20130408
  2. SABRIL (FOR ORAL SOLUTION) [Suspect]
     Dates: start: 20130519
  3. SABRIL (FOR ORAL SOLUTION) [Suspect]
  4. DEPAKENE [Concomitant]
     Indication: PRODUCT USED FOR UNKNOWN INDICATION
  5. MELATONIN [Concomitant]
     Indication: PRODUCT USED FOR UNKNOWN INDICATION
     Route: 048
  6. CARNITOR [Concomitant]
     Indication: PRODUCT USED FOR UNKNOWN INDICATION
     Route: 048
  7. ZONEGRAN [Concomitant]
     Indication: PRODUCT USED FOR UNKNOWN INDICATION
     Dosage: TAKE 1 CAPSULE BY MOUTH DAILY, 5 CAPS DAILY
  8. ZANTAC [Concomitant]
     Indication: PRODUCT USED FOR UNKNOWN INDICATION
     Route: 048
  9. PERIACTIN [Concomitant]
     Indication: PRODUCT USED FOR UNKNOWN INDICATION
     Route: 048
  10. ACCUNEB [Concomitant]
     Indication: WHEEZING
     Route: 050
  11. MILK OF MAGNESIA [Concomitant]
     Indication: CONSTIPATION
     Route: 048

REACTIONS (5)
  - Rhinovirus infection [Recovered/Resolved]
  - Partial seizures [Unknown]
  - Atelectasis [Unknown]
  - Infantile spasms [Unknown]
  - Respiratory distress [Recovered/Resolved]
